FAERS Safety Report 5917927-1 (Version None)
Quarter: 2008Q4

REPORT INFORMATION
  Report Type: 
  Country: None (occurrence: None)
  Receive Date: 20081014
  Receipt Date: 20081002
  Transmission Date: 20090506
  Serious: Yes (Hospitalization)
  Sender: FDA-Public Use
  Company Number: GB-ROCHE-589217

PATIENT
  Age: 34 Year
  Sex: Female
  Weight: 79 kg

DRUGS (10)
  1. CAPECITABINE [Suspect]
     Indication: COLON CANCER
     Route: 048
     Dates: start: 20080828, end: 20080829
  2. OXALIPLATIN [Suspect]
     Indication: COLON CANCER
     Dosage: FREQUENCY NOT REPORTED
     Route: 042
     Dates: start: 20080828
  3. ANAESTHETIC [Concomitant]
  4. CALCIUM [Concomitant]
     Route: 042
  5. CO-DYDRAMOL [Concomitant]
  6. DEXAMETHASONE [Concomitant]
     Route: 048
     Dates: start: 20080828, end: 20080828
  7. DEXAMETHASONE [Concomitant]
     Dosage: INDICATION: PREMEDICATION
     Route: 048
     Dates: start: 20080829
  8. DOMPERIDONE [Concomitant]
     Route: 048
     Dates: start: 20080829
  9. GRANISETRON [Concomitant]
     Indication: PREMEDICATION
     Route: 048
     Dates: start: 20080828, end: 20080828
  10. MAGNESIUM SULFATE [Concomitant]
     Route: 042

REACTIONS (6)
  - ABASIA [None]
  - BLOOD CREATINE PHOSPHOKINASE INCREASED [None]
  - DEHYDRATION [None]
  - MYALGIA [None]
  - MYOSITIS [None]
  - VOMITING [None]
